FAERS Safety Report 21234903 (Version 1)
Quarter: 2022Q3

REPORT INFORMATION
  Report Type: Spontaneous
  Country: UZ (occurrence: UZ)
  Receive Date: 20220821
  Receipt Date: 20220821
  Transmission Date: 20221027
  Serious: Yes (Hospitalization, Other)
  Sender: FDA-Public Use
  Company Number: UZ-JNJFOC-20220818776

PATIENT
  Age: 25 Year
  Sex: Female

DRUGS (8)
  1. SIRTURO [Suspect]
     Active Substance: BEDAQUILINE FUMARATE
     Indication: Tuberculosis
     Route: 048
     Dates: start: 20220318, end: 20220406
  2. SIRTURO [Suspect]
     Active Substance: BEDAQUILINE FUMARATE
     Route: 048
     Dates: start: 20220407, end: 20220728
  3. CYCLOSERINE [Suspect]
     Active Substance: CYCLOSERINE
     Indication: Tuberculosis
     Route: 065
     Dates: start: 20220318, end: 20220406
  4. CYCLOSERINE [Suspect]
     Active Substance: CYCLOSERINE
     Route: 065
     Dates: start: 20220601, end: 20220728
  5. CLOFAZIMINE [Suspect]
     Active Substance: CLOFAZIMINE
     Indication: Tuberculosis
     Route: 065
     Dates: start: 20220407, end: 20220524
  6. LEVOFLOXACIN [Suspect]
     Active Substance: LEVOFLOXACIN
     Indication: Tuberculosis
     Route: 065
     Dates: start: 20220318, end: 20220728
  7. LINEZOLID [Suspect]
     Active Substance: LINEZOLID
     Indication: Tuberculosis
     Route: 065
     Dates: start: 20220318, end: 20220727
  8. AMIKACIN [Suspect]
     Active Substance: AMIKACIN
     Indication: Tuberculosis
     Route: 065
     Dates: start: 20220318, end: 20220406

REACTIONS (8)
  - Pneumatosis intestinalis [Unknown]
  - Cholecystitis chronic [Unknown]
  - Hospitalisation [Unknown]
  - Intestinal obstruction [Unknown]
  - Anaemia [Unknown]
  - Tinnitus [Unknown]
  - Faeces discoloured [Unknown]
  - Off label use [Unknown]

NARRATIVE: CASE EVENT DATE: 20220101
